FAERS Safety Report 14678621 (Version 1)
Quarter: 2018Q1

REPORT INFORMATION
  Report Type: Report from Study
  Country: CO (occurrence: CO)
  Receive Date: 20180326
  Receipt Date: 20180326
  Transmission Date: 20180509
  Serious: Yes (Other)
  Sender: FDA-Public Use
  Company Number: CO-ROCHE-2093805

PATIENT
  Sex: Male
  Weight: 52 kg

DRUGS (2)
  1. XOLAIR [Suspect]
     Active Substance: OMALIZUMAB
     Indication: ASTHMA
     Dosage: 600 MG, BIW
     Route: 058
  2. XOLAIR [Suspect]
     Active Substance: OMALIZUMAB
     Dosage: 4 AMPOULES EVERY 15 DAYS
     Route: 058

REACTIONS (6)
  - Malaise [Unknown]
  - Asthma [Unknown]
  - Dyspnoea [Unknown]
  - Aggression [Unknown]
  - Lung infection [Unknown]
  - Respiratory tract infection [Unknown]
